FAERS Safety Report 22290040 (Version 1)
Quarter: 2023Q2

REPORT INFORMATION
  Report Type: Spontaneous
  Country: US (occurrence: US)
  Receive Date: 20230505
  Receipt Date: 20230505
  Transmission Date: 20230722
  Serious: Yes (Hospitalization, Other)
  Sender: FDA-Public Use
  Company Number: US-JNJFOC-20230466404

PATIENT
  Age: 92 Year
  Sex: Male

DRUGS (1)
  1. XARELTO [Suspect]
     Active Substance: RIVAROXABAN
     Indication: Prophylaxis
     Route: 048

REACTIONS (6)
  - Renal cyst [Unknown]
  - Haematuria [Unknown]
  - Haemorrhage subcutaneous [Not Recovered/Not Resolved]
  - Mental impairment [Unknown]
  - Psoriasis [Not Recovered/Not Resolved]
  - Off label use [Unknown]
